FAERS Safety Report 11468095 (Version 1)
Quarter: 2015Q3

REPORT INFORMATION
  Report Type: Spontaneous
  Country: US (occurrence: US)
  Receive Date: 20150908
  Receipt Date: 20150908
  Transmission Date: 20151125
  Serious: No
  Sender: FDA-Public Use
  Company Number: US-SUN PHARMACEUTICAL INDUSTRIES LTD-2015US-98339

PATIENT
  Age: 64 Year
  Sex: Female

DRUGS (1)
  1. IBANDRONIC [Suspect]
     Active Substance: IBANDRONIC ACID
     Indication: PRODUCT USED FOR UNKNOWN INDICATION
     Dosage: UNK UNK, 3 MONTHLY
     Route: 042
     Dates: end: 20141210

REACTIONS (2)
  - Dental discomfort [Unknown]
  - Tooth infection [Not Recovered/Not Resolved]
